FAERS Safety Report 7157432-0 (Version None)
Quarter: 2010Q4

REPORT INFORMATION
  Report Type: 
  Country: None (occurrence: None)
  Receive Date: 20101214
  Receipt Date: 20101208
  Transmission Date: 20110411
  Serious: Yes (Hospitalization, Disabling)
  Sender: FDA-Public Use
  Company Number: A0891787A

PATIENT
  Age: 36 Year
  Sex: Male
  Weight: 70.5 kg

DRUGS (2)
  1. ARIXTRA [Suspect]
     Indication: PULMONARY EMBOLISM
     Dosage: 7.5MG UNKNOWN
     Route: 065
     Dates: start: 20100917, end: 20101001
  2. COUMADIN [Suspect]
     Indication: PULMONARY EMBOLISM
     Route: 065
     Dates: end: 20101001

REACTIONS (3)
  - DEEP VEIN THROMBOSIS [None]
  - HOSPITALISATION [None]
  - MYALGIA [None]
